FAERS Safety Report 8829252 (Version 1)
Quarter: 2012Q4

REPORT INFORMATION
  Report Type: 
  Country: US (occurrence: US)
  Receive Date: 20121009
  Receipt Date: 20121009
  Transmission Date: 20130627
  Serious: Yes (Other)
  Sender: FDA-Public Use
  Company Number: US-AMGEN-USASP2012063011

PATIENT
  Age: 68 Year
  Sex: Male

DRUGS (4)
  1. ENBREL [Suspect]
     Indication: RHEUMATOID ARTHRITIS
     Dosage: 50 mg, qwk
     Dates: start: 20120731
  2. METHOTREXATE [Concomitant]
     Dosage: 12.5 mg, qwk for 2 or 3 years
  3. PREDNISONE [Concomitant]
     Dosage: 7.5 mg, qd for 4-5 years
  4. ARTHROTEC [Concomitant]
     Dosage: 2 Pills, for 5 years

REACTIONS (1)
  - Inguinal hernia [Not Recovered/Not Resolved]
